FAERS Safety Report 22238728 (Version 1)
Quarter: 2023Q2

REPORT INFORMATION
  Report Type: Spontaneous
  Country: US (occurrence: None)
  Receive Date: 20230420
  Receipt Date: 20230420
  Transmission Date: 20230722
  Serious: Yes (unspecified)
  Sender: FDA-Public Use
  Company Number: None

PATIENT
  Age: 52 Year
  Sex: Female
  Weight: 75.15 kg

DRUGS (16)
  1. ARTIFICIAL TEARS (CARBOXYMETHYLCELLULOSE SODIUM) [Suspect]
     Active Substance: CARBOXYMETHYLCELLULOSE SODIUM
     Indication: Dry eye
     Dosage: OTHER QUANTITY : 6 DROP(S);?FREQUENCY : TWICE A DAY;?
     Route: 047
  2. HYDROCHLOROTHIAZIDE [Concomitant]
     Active Substance: HYDROCHLOROTHIAZIDE
  3. PREMARIN [Concomitant]
     Active Substance: ESTROGENS, CONJUGATED
  4. Venlafazine [Concomitant]
  5. VALSARTAN [Concomitant]
     Active Substance: VALSARTAN
  6. Methimaxole [Concomitant]
  7. PROGESTERONE [Concomitant]
     Active Substance: PROGESTERONE
  8. MONTELUKAST [Concomitant]
     Active Substance: MONTELUKAST SODIUM
  9. Budesonide-Formoterol Inhaler [Concomitant]
  10. FLUTICASONE PROPIONATE [Concomitant]
     Active Substance: FLUTICASONE PROPIONATE
  11. VITAMIN D3 [Concomitant]
     Active Substance: CHOLECALCIFEROL
  12. VITAMIN K1 [Concomitant]
     Active Substance: PHYTONADIONE
  13. PROBIOTICS NOS [Concomitant]
     Active Substance: PROBIOTICS NOS
  14. VITAMIN C [Concomitant]
     Active Substance: ASCORBIC ACID
  15. CALCIUM CARBONATE\CHOLECALCIFEROL [Concomitant]
     Active Substance: CALCIUM CARBONATE\CHOLECALCIFEROL
  16. FISH OIL\OMEGA-3 FATTY ACIDS [Concomitant]
     Active Substance: FISH OIL\OMEGA-3 FATTY ACIDS

REACTIONS (4)
  - Vision blurred [None]
  - Eye pruritus [None]
  - Eye discharge [None]
  - Instillation site erythema [None]

NARRATIVE: CASE EVENT DATE: 20230419
